FAERS Safety Report 21403772 (Version 2)
Quarter: 2022Q4

REPORT INFORMATION
  Report Type: Report from Study
  Country: EG (occurrence: EG)
  Receive Date: 20221003
  Receipt Date: 20221027
  Transmission Date: 20230112
  Serious: Yes (Other)
  Sender: FDA-Public Use
  Company Number: EG-JNJFOC-20220804570

PATIENT
  Age: 33 Year
  Sex: Female

DRUGS (8)
  1. DARATUMUMAB [Suspect]
     Active Substance: DARATUMUMAB
     Indication: Plasma cell myeloma
     Dosage: 1ST DOSE
     Route: 065
     Dates: start: 20220719
  2. DARATUMUMAB [Suspect]
     Active Substance: DARATUMUMAB
     Dosage: 2ND DOSE
     Route: 065
     Dates: start: 20220808
  3. DARATUMUMAB [Suspect]
     Active Substance: DARATUMUMAB
     Dosage: 3RD DOSE
     Route: 065
     Dates: start: 20220920
  4. VELCADE [Suspect]
     Active Substance: BORTEZOMIB
     Indication: Plasma cell myeloma
     Route: 065
  5. MIDODRINE HYDROCHLORIDE [Concomitant]
     Active Substance: MIDODRINE HYDROCHLORIDE
     Indication: Hypotension
     Route: 065
  6. OXYFREE [Concomitant]
     Indication: Product used for unknown indication
     Route: 065
  7. LENALIDOMIDE [Concomitant]
     Active Substance: LENALIDOMIDE
     Indication: Product used for unknown indication
     Route: 065
  8. ASPIRIN [Concomitant]
     Active Substance: ASPIRIN
     Indication: Product used for unknown indication
     Route: 065

REACTIONS (5)
  - Abortion spontaneous [Recovered/Resolved]
  - Exposure during pregnancy [Recovered/Resolved]
  - Gastritis [Recovered/Resolved with Sequelae]
  - Cough [Recovered/Resolved]
  - Influenza [Recovered/Resolved]

NARRATIVE: CASE EVENT DATE: 20220726
